FAERS Safety Report 4568032-0 (Version None)
Quarter: 2005Q1

REPORT INFORMATION
  Report Type: 
  Country: None (occurrence: None)
  Receive Date: 20050202
  Receipt Date: 20050125
  Transmission Date: 20050727
  Serious: Yes (Other)
  Sender: FDA-Public Use
  Company Number: 200510648US

PATIENT
  Sex: Female
  Weight: 77.3 kg

DRUGS (3)
  1. NASACORT AQ [Suspect]
     Dosage: DOSE: 1 SPRAY EACH NOSTRIL
  2. THYROID PREPARATIONS [Concomitant]
     Dosage: DOSE: UNK
  3. LIPITOR [Concomitant]
     Dosage: DOSE: UNK

REACTIONS (2)
  - CATARACT [None]
  - CONDITION AGGRAVATED [None]
